FAERS Safety Report 19010264 (Version 2)
Quarter: 2021Q2

REPORT INFORMATION
  Report Type: Spontaneous
  Country: JP (occurrence: JP)
  Receive Date: 20210315
  Receipt Date: 20210422
  Transmission Date: 20210717
  Serious: Yes (Hospitalization, Other)
  Sender: FDA-Public Use
  Company Number: JP-SA-2021SA083251

PATIENT
  Age: 70 Year
  Sex: Male

DRUGS (6)
  1. ATORVASTATIN [Concomitant]
     Active Substance: ATORVASTATIN
     Dosage: PER ORAL NOS
  2. ZOLPIDEM TARTRATE. [Suspect]
     Active Substance: ZOLPIDEM TARTRATE
     Indication: PRODUCT USED FOR UNKNOWN INDICATION
     Dosage: UNK UNK, UNKNOWN FREQ.
     Route: 048
  3. CLOPIDOGREL [Suspect]
     Active Substance: CLOPIDOGREL BISULFATE
     Dosage: PER ORAL NOS
  4. AMLODIPINE BESILATE [Concomitant]
     Active Substance: AMLODIPINE BESYLATE
     Dosage: PER ORAL NOS
  5. VALSARTAN. [Concomitant]
     Active Substance: VALSARTAN
     Dosage: PER ORAL NOS
  6. LANSOPRAZOLE. [Concomitant]
     Active Substance: LANSOPRAZOLE
     Dosage: PER ORAL NOS

REACTIONS (4)
  - Diverticulum intestinal [Unknown]
  - Haematochezia [Recovered/Resolved]
  - Diverticulum intestinal haemorrhagic [Unknown]
  - Thrombosis [Recovered/Resolved]
